FAERS Safety Report 6491836-4 (Version None)
Quarter: 2009Q4

REPORT INFORMATION
  Report Type: 
  Country: None (occurrence: None)
  Receive Date: 20091210
  Receipt Date: 20091207
  Transmission Date: 20100525
  Serious: Yes (Death, Hospitalization)
  Sender: FDA-Public Use
  Company Number: SP01758

PATIENT
  Age: 77 Year
  Sex: Female
  Weight: 50.8029 kg

DRUGS (10)
  1. OSMOPREP [Suspect]
     Indication: COLONOSCOPY
     Dosage: (32 TABLETS) ,ORAL
     Route: 048
     Dates: start: 20061112, end: 20061113
  2. LISINOPRIL [Concomitant]
  3. DIOVAN HCT [Concomitant]
  4. NORVASC [Concomitant]
  5. DIPYRIDAMOLE [Concomitant]
  6. SYNTHROID [Concomitant]
  7. XALATAN [Concomitant]
  8. TIMOPTIC [Concomitant]
  9. TYLENOL (CAPLET) [Concomitant]
  10. NEXIUM [Concomitant]

REACTIONS (22)
  - ASPIRATION [None]
  - ATELECTASIS [None]
  - BLOOD POTASSIUM DECREASED [None]
  - DIVERTICULITIS [None]
  - ELECTROLYTE IMBALANCE [None]
  - GALLBLADDER ENLARGEMENT [None]
  - HAEMODIALYSIS [None]
  - HYPOAESTHESIA [None]
  - LETHARGY [None]
  - LUNG INFECTION [None]
  - NEPHROCALCINOSIS [None]
  - NOCARDIOSIS [None]
  - PARAESTHESIA [None]
  - PLEURAL EFFUSION [None]
  - PNEUMONIA [None]
  - PULMONARY MASS [None]
  - RENAL FAILURE ACUTE [None]
  - RENAL TUBULAR NECROSIS [None]
  - RESPIRATORY ARREST [None]
  - SEPSIS [None]
  - TREMOR [None]
  - TUBULOINTERSTITIAL NEPHRITIS [None]
